FAERS Safety Report 14527726 (Version 1)
Quarter: 2018Q1

REPORT INFORMATION
  Report Type: Spontaneous
  Country: IT (occurrence: IT)
  Receive Date: 20180213
  Receipt Date: 20180213
  Transmission Date: 20180509
  Serious: Yes (Hospitalization)
  Sender: FDA-Public Use
  Company Number: IT-SA-2018SA026293

PATIENT
  Age: 15 Year
  Sex: Male
  Weight: 113 kg

DRUGS (2)
  1. GEMCITABINE [Concomitant]
     Active Substance: GEMCITABINE\GEMCITABINE HYDROCHLORIDE
     Indication: OSTEOSARCOMA RECURRENT
     Route: 042
     Dates: start: 20170120
  2. TAXOTERE [Suspect]
     Active Substance: DOCETAXEL
     Indication: OSTEOSARCOMA RECURRENT
     Route: 042
     Dates: start: 20170120, end: 20170621

REACTIONS (3)
  - Antithrombin III decreased [Recovered/Resolved]
  - Generalised oedema [Recovered/Resolved]
  - Hypoalbuminaemia [Recovered/Resolved]

NARRATIVE: CASE EVENT DATE: 20170621
